FAERS Safety Report 7058176-6 (Version None)
Quarter: 2010Q4

REPORT INFORMATION
  Report Type: 
  Country: None (occurrence: None)
  Receive Date: 20101022
  Receipt Date: 20101013
  Transmission Date: 20110411
  Serious: Yes (Death)
  Sender: FDA-Public Use
  Company Number: US-WATSON-2010-07883

PATIENT
  Sex: Male

DRUGS (6)
  1. FENTANYL-75 [Suspect]
     Indication: RIB FRACTURE
     Dosage: 1 PATCH, SINGLE
     Route: 062
     Dates: start: 20091105, end: 20091106
  2. FENTANYL-75 [Suspect]
     Indication: PAIN
  3. LORTAB [Concomitant]
     Indication: PAIN
     Dosage: 7.5/500 MG; ONE-HALF TO ONE LORTAB TABLET EVERY 4-6 HOURS AS NEEDED FOR PAIN
     Route: 048
     Dates: start: 20091103
  4. FLEXERIL [Concomitant]
     Indication: PRODUCT USED FOR UNKNOWN INDICATION
     Dosage: ONE TABLET THREE TIMES A DAY FOR TEN DAYS
     Route: 048
     Dates: start: 20091103
  5. PERCOCET [Concomitant]
     Indication: PAIN
     Dosage: 7.5MG/325MG; ONE TABLET EVERY SIX HOURS AS NEEDED FOR PAIN
     Route: 048
     Dates: start: 20091104
  6. LYRICA [Concomitant]
     Indication: PAIN
     Dosage: GIVEN SAMPLES OF LYRICA, 75 MG CAPSULES
     Route: 048
     Dates: start: 20091105

REACTIONS (6)
  - DRUG LEVEL INCREASED [None]
  - DRUG PRESCRIBING ERROR [None]
  - NARCOTIC INTOXICATION [None]
  - RESPIRATORY ARREST [None]
  - SNORING [None]
  - UNRESPONSIVE TO STIMULI [None]
